FAERS Safety Report 13404916 (Version 1)
Quarter: 2017Q2

REPORT INFORMATION
  Report Type: Spontaneous
  Country: BR (occurrence: BR)
  Receive Date: 20170405
  Receipt Date: 20170405
  Transmission Date: 20170830
  Serious: Yes (Hospitalization)
  Sender: FDA-Public Use
  Company Number: BR-EISAI MEDICAL RESEARCH-EC-2017-026273

PATIENT
  Age: 72 Year
  Sex: Female

DRUGS (1)
  1. HALAVEN [Suspect]
     Active Substance: ERIBULIN MESYLATE
     Indication: BREAST CANCER
     Route: 041
     Dates: start: 20170221, end: 20170221

REACTIONS (7)
  - Anaemia [Recovering/Resolving]
  - Mucosal inflammation [Recovered/Resolved]
  - Generalised oedema [Recovered/Resolved]
  - Electrolyte imbalance [Recovering/Resolving]
  - Dermatitis [Recovering/Resolving]
  - Weight increased [Recovering/Resolving]
  - Febrile neutropenia [Recovering/Resolving]

NARRATIVE: CASE EVENT DATE: 20170221
